FAERS Safety Report 25296617 (Version 1)
Quarter: 2025Q2

REPORT INFORMATION
  Report Type: Report from Study
  Country: GB (occurrence: GB)
  Receive Date: 20250511
  Receipt Date: 20250511
  Transmission Date: 20250717
  Serious: Yes (Hospitalization)
  Sender: ABBVIE
  Company Number: GB-ABBVIE-6275225

PATIENT
  Age: 74 Year
  Sex: Male

DRUGS (3)
  1. CARBIDOPA\LEVODOPA [Suspect]
     Active Substance: CARBIDOPA\LEVODOPA
     Indication: Parkinson^s disease
     Route: 050
  2. CARBIDOPA\LEVODOPA [Suspect]
     Active Substance: CARBIDOPA\LEVODOPA
     Route: 050
     Dates: start: 20250402
  3. CARBIDOPA\LEVODOPA [Suspect]
     Active Substance: CARBIDOPA\LEVODOPA
     Route: 050

REACTIONS (5)
  - Peripheral swelling [Unknown]
  - Chest pain [Unknown]
  - Mobility decreased [Unknown]
  - Fall [Unknown]
  - Hallucination, auditory [Unknown]

NARRATIVE: CASE EVENT DATE: 20250101
